FAERS Safety Report 19088369 (Version 1)
Quarter: 2021Q2

REPORT INFORMATION
  Report Type: Spontaneous
  Country: JP (occurrence: JP)
  Receive Date: 20210402
  Receipt Date: 20210402
  Transmission Date: 20210717
  Serious: Yes (Hospitalization, Other)
  Sender: FDA-Public Use
  Company Number: JP-CELGENEUS-JPN-20210307304

PATIENT
  Age: 76 Year
  Sex: Female
  Weight: 39.6 kg

DRUGS (9)
  1. ABRAXANE [Suspect]
     Active Substance: PACLITAXEL
     Indication: PANCREATIC CARCINOMA METASTATIC
     Route: 041
     Dates: start: 2019
  2. METFORMIN [Concomitant]
     Active Substance: METFORMIN HYDROCHLORIDE
     Indication: DIABETES MELLITUS
     Dosage: 1500 MILLIGRAM
     Route: 048
  3. FAMCICLOVIR. [Concomitant]
     Active Substance: FAMCICLOVIR
     Indication: HERPES ZOSTER
     Dosage: 1500 MILLIGRAM
     Route: 048
     Dates: start: 2019
  4. GLIMEPIRIDE. [Concomitant]
     Active Substance: GLIMEPIRIDE
     Indication: DIABETES MELLITUS
     Dosage: 1 MILLIGRAM
     Route: 048
  5. GEMCITABINE. [Concomitant]
     Active Substance: GEMCITABINE
     Indication: PANCREATIC CARCINOMA METASTATIC
     Route: 041
     Dates: start: 2019
  6. ALOGLIPTIN BENZOATE/METFORMIN HYDROCHLORIDE [Concomitant]
     Active Substance: ALOGLIPTIN BENZOATE\METFORMIN HYDROCHLORIDE
     Indication: DIABETES MELLITUS
     Route: 048
  7. PIOGLITAZONE. [Concomitant]
     Active Substance: PIOGLITAZONE
     Indication: DIABETES MELLITUS
     Dosage: 15 MILLIGRAM
     Route: 048
  8. SHAKUYAKUKANZOTO EXTRACT [Concomitant]
     Indication: DIABETES MELLITUS
     Route: 048
  9. INSULIN [Concomitant]
     Active Substance: INSULIN NOS
     Indication: DIABETES MELLITUS
     Route: 058
     Dates: start: 201902

REACTIONS (3)
  - Neutrophil count decreased [Recovered/Resolved]
  - Ophthalmic herpes zoster [Recovered/Resolved]
  - IIIrd nerve paralysis [Recovered/Resolved]

NARRATIVE: CASE EVENT DATE: 2019
